FAERS Safety Report 19427871 (Version 3)
Quarter: 2021Q2

REPORT INFORMATION
  Report Type: Spontaneous
  Country: CN (occurrence: CN)
  Receive Date: 20210617
  Receipt Date: 20210623
  Transmission Date: 20210717
  Serious: Yes (Death, Hospitalization)
  Sender: FDA-Public Use
  Company Number: CN-CELGENEUS-CHN-20210604156

PATIENT
  Age: 60 Year
  Sex: Male
  Weight: 57.6 kg

DRUGS (5)
  1. ABRAXANE [Suspect]
     Active Substance: PACLITAXEL
     Indication: OESOPHAGEAL SQUAMOUS CELL CARCINOMA
     Dosage: 260 MILLIGRAM/SQ. METER
     Route: 065
     Dates: start: 20210228, end: 20210319
  2. CARBOPLATIN. [Suspect]
     Active Substance: CARBOPLATIN
     Indication: OESOPHAGEAL SQUAMOUS CELL CARCINOMA
     Dosage: AUC5
     Route: 065
     Dates: start: 20210228, end: 20210319
  3. 5?FLUOROURACIL [Suspect]
     Active Substance: FLUOROURACIL
     Indication: OESOPHAGEAL SQUAMOUS CELL CARCINOMA
     Dosage: 750 MILLIGRAM
     Route: 065
     Dates: start: 20210419, end: 20210517
  4. CISPLATIN. [Suspect]
     Active Substance: CISPLATIN
     Indication: OESOPHAGEAL SQUAMOUS CELL CARCINOMA
     Dosage: 75 MILLIGRAM/SQ. METER
     Route: 065
     Dates: start: 20210419, end: 20210517
  5. CAMRELIZUMAB [Suspect]
     Active Substance: CAMRELIZUMAB
     Indication: OESOPHAGEAL SQUAMOUS CELL CARCINOMA
     Dosage: 200 MILLIGRAM
     Route: 065
     Dates: start: 20210228, end: 20210319

REACTIONS (2)
  - Septic shock [Fatal]
  - Myelosuppression [Fatal]

NARRATIVE: CASE EVENT DATE: 20210531
